FAERS Safety Report 10366424 (Version 2)
Quarter: 2014Q3

REPORT INFORMATION
  Report Type: Report from Study
  Country: MX (occurrence: MX)
  Receive Date: 20140806
  Receipt Date: 20140812
  Transmission Date: 20150326
  Serious: Yes (Hospitalization, Other)
  Sender: FDA-Public Use
  Company Number: PHHY2014MX096482

PATIENT
  Age: 74 Year
  Sex: Male

DRUGS (2)
  1. RASILLES HCT [Concomitant]
     Indication: BLOOD PRESSURE ABNORMAL
     Dosage: HALF A TABLET IN MORNING AND HALF AT NIGHT
     Route: 048
  2. TEGRETOL [Suspect]
     Active Substance: CARBAMAZEPINE
     Indication: EPILEPSY
     Dosage: UNK UKN, UNK

REACTIONS (5)
  - Dyskinesia [Unknown]
  - Cerebral infarction [Unknown]
  - Convulsion [Unknown]
  - Prostatic disorder [Unknown]
  - Drug ineffective [Recovered/Resolved]
